FAERS Safety Report 26209157 (Version 1)
Quarter: 2025Q4

REPORT INFORMATION
  Report Type: Spontaneous
  Country: GB (occurrence: GB)
  Receive Date: 20251229
  Receipt Date: 20251229
  Transmission Date: 20260117
  Serious: Yes (Disabling)
  Sender: BAYER HEALTHCARE PHARMACEUTICALS INC.
  Company Number: None

PATIENT
  Age: 62 Year
  Sex: Male
  Weight: 74 kg

DRUGS (3)
  1. CIPROFLOXACIN [Suspect]
     Active Substance: CIPROFLOXACIN
     Indication: Prostatitis
  2. FLUOCINOLONE [Suspect]
     Active Substance: FLUOCINOLONE
     Indication: Prostatitis
  3. HYDROCORTISONE [Concomitant]
     Active Substance: HYDROCORTISONE

REACTIONS (3)
  - Tendonitis [Not Recovered/Not Resolved]
  - Peripheral coldness [Unknown]
  - Product prescribing issue [None]

NARRATIVE: CASE EVENT DATE: 20221222
